FAERS Safety Report 6135068-8 (Version None)
Quarter: 2009Q1

REPORT INFORMATION
  Report Type: 
  Country: None (occurrence: None)
  Receive Date: 20090327
  Receipt Date: 20090326
  Transmission Date: 20090719
  Serious: Yes (Hospitalization)
  Sender: FDA-Public Use
  Company Number: US-RB-005035-08

PATIENT
  Sex: Female

DRUGS (1)
  1. SUBUTEX [Suspect]
     Indication: DRUG USE FOR UNKNOWN INDICATION
     Dosage: DOSAGE UNKNOWN
     Route: 065

REACTIONS (1)
  - HYPOKALAEMIA [None]
